FAERS Safety Report 24285900 (Version 1)
Quarter: 2024Q3

REPORT INFORMATION
  Report Type: Spontaneous
  Country: DE (occurrence: DE)
  Receive Date: 20240905
  Receipt Date: 20240905
  Transmission Date: 20241016
  Serious: Yes (Hospitalization, Other)
  Sender: CELLTRION
  Company Number: DE-ABBVIE-5664613

PATIENT

DRUGS (6)
  1. INFLIXIMAB [Suspect]
     Active Substance: INFLIXIMAB
     Indication: Crohn^s disease
     Dosage: UNK
     Dates: start: 202110, end: 202205
  2. ADALIMUMAB [Suspect]
     Active Substance: ADALIMUMAB
     Indication: Crohn^s disease
     Dosage: UNK
     Route: 058
     Dates: end: 202011
  3. USTEKINUMAB [Concomitant]
     Active Substance: USTEKINUMAB
     Indication: Crohn^s disease
     Dosage: UNK
     Dates: start: 202011, end: 202310
  4. PREDNISOLONE ACETATE [Concomitant]
     Active Substance: PREDNISOLONE ACETATE
     Indication: Product used for unknown indication
     Dosage: PRENDISOLONE SHOCK THERAPY
  5. AZATHIOPRINE [Concomitant]
     Active Substance: AZATHIOPRINE
     Indication: Crohn^s disease
     Dosage: UNK
     Dates: start: 202205, end: 202305
  6. GOLIMUMAB [Concomitant]
     Active Substance: GOLIMUMAB
     Indication: Crohn^s disease
     Dosage: UNK
     Dates: start: 202205, end: 202305

REACTIONS (12)
  - Crohn^s disease [Unknown]
  - Hepatic vein thrombosis [Unknown]
  - Fluid retention [Unknown]
  - Lymphadenopathy [Unknown]
  - Colonic abscess [Unknown]
  - Haemolysis [Unknown]
  - COVID-19 [Unknown]
  - Clostridium difficile infection [Unknown]
  - Cytomegalovirus colitis [Unknown]
  - Gastroenteritis clostridial [Recovered/Resolved]
  - Gastroenteritis clostridial [Unknown]
  - Therapeutic product effect decreased [Unknown]

NARRATIVE: CASE EVENT DATE: 20210101
